FAERS Safety Report 15238172 (Version 1)
Quarter: 2018Q3

REPORT INFORMATION
  Report Type: Spontaneous
  Country: HU (occurrence: HU)
  Receive Date: 20180803
  Receipt Date: 20180803
  Transmission Date: 20181010
  Serious: Yes (Death)
  Sender: FDA-Public Use
  Company Number: PHHY2018HU064747

PATIENT
  Age: 73 Year
  Sex: Male

DRUGS (2)
  1. VOLTAREN [Suspect]
     Active Substance: DICLOFENAC SODIUM
     Indication: NERVE COMPRESSION
     Route: 065
  2. ALGOPYRIN [Concomitant]
     Active Substance: METAMIZOLE SODIUM
     Indication: NERVE COMPRESSION
     Route: 065

REACTIONS (1)
  - Acute left ventricular failure [Fatal]
